FAERS Safety Report 15594663 (Version 7)
Quarter: 2019Q4

REPORT INFORMATION
  Report Type: Report from Study
  Country: GB (occurrence: GB)
  Receive Date: 20181107
  Receipt Date: 20191125
  Transmission Date: 20200122
  Serious: Yes (Life-Threatening, Hospitalization)
  Sender: FDA-Public Use
  Company Number: GB-CELGENEUS-GBR-20181101028

PATIENT
  Age: 62 Year
  Sex: Male
  Weight: 61.4 kg

DRUGS (17)
  1. ABRAXANE [Suspect]
     Active Substance: PACLITAXEL
     Indication: PANCREATIC CARCINOMA
     Dosage: 24.2857 MILLIGRAM
     Route: 041
     Dates: start: 20181018, end: 20181025
  2. GEMCITABINE. [Suspect]
     Active Substance: GEMCITABINE
     Indication: PANCREATIC CARCINOMA
     Dosage: 1400 MILLIGRAM
     Route: 041
     Dates: start: 20181018
  3. LAXIDO ORANGE [Concomitant]
     Dosage: 3 DOSAGE FORMS
     Route: 048
     Dates: start: 20181018, end: 20181112
  4. OMEPRAZOLE. [Concomitant]
     Active Substance: OMEPRAZOLE
     Indication: GASTROOESOPHAGEAL REFLUX DISEASE
     Dosage: 40 MILLIGRAM
     Route: 048
     Dates: start: 201805
  5. CREON 2500 [Concomitant]
     Indication: ENZYME SUPPLEMENTATION
     Route: 048
     Dates: start: 20181014, end: 20181115
  6. COCODAMOL [Concomitant]
     Active Substance: ACETAMINOPHEN\CODEINE PHOSPHATE
     Route: 048
     Dates: start: 20181008, end: 20181112
  7. DOMPERIDONE [Concomitant]
     Active Substance: DOMPERIDONE
     Indication: NAUSEA
     Dosage: 30 MILLIGRAM
     Route: 048
     Dates: start: 20181013
  8. PARACETAMOL [Concomitant]
     Active Substance: ACETAMINOPHEN
     Dosage: 4 GRAM
     Route: 048
     Dates: start: 20181030, end: 20181106
  9. DOMPERIDONE [Concomitant]
     Active Substance: DOMPERIDONE
     Indication: NAUSEA
     Dosage: 30 MILLIGRAM
     Route: 048
     Dates: start: 20181018, end: 20181031
  10. OMEPRAZOLE. [Concomitant]
     Active Substance: OMEPRAZOLE
     Dosage: 40 MILLIGRAM
     Route: 048
     Dates: start: 20181114, end: 20181115
  11. COCODAMOL [Concomitant]
     Active Substance: ACETAMINOPHEN\CODEINE PHOSPHATE
     Indication: PAIN
     Dosage: 30/500 ONE OR TWO
     Route: 048
     Dates: start: 20181018
  12. LOPERAMIDE [Concomitant]
     Active Substance: LOPERAMIDE
     Indication: DIARRHOEA
     Dosage: 16 MILLIGRAM
     Route: 048
     Dates: start: 20181105, end: 20181106
  13. PABRINEX [Concomitant]
     Active Substance: ASCORBIC ACID\VITAMIN B COMPLEX
     Indication: VITAMIN SUPPLEMENTATION
     Dosage: 2 PAIRS
     Route: 041
     Dates: start: 20181030, end: 20181108
  14. LAXIDO ORANGE [Concomitant]
     Indication: CONSTIPATION
     Dosage: 3 DOSAGE FORMS
     Route: 048
     Dates: start: 201805
  15. PARACETAMOL [Concomitant]
     Active Substance: ACETAMINOPHEN
     Indication: PAIN
     Dosage: 3 GRAM
     Route: 048
     Dates: start: 201805, end: 20181008
  16. PABRINEX [Concomitant]
     Active Substance: ASCORBIC ACID\VITAMIN B COMPLEX
     Dosage: 2500 UNITS
     Route: 048
     Dates: start: 20181030
  17. CREON 2500 [Concomitant]
     Dosage: 2500 UNITS
     Route: 048
     Dates: start: 20181030

REACTIONS (3)
  - Neutropenic sepsis [Recovered/Resolved]
  - Jaundice cholestatic [Recovered/Resolved with Sequelae]
  - Jaundice cholestatic [Recovered/Resolved]

NARRATIVE: CASE EVENT DATE: 20181030
